FAERS Safety Report 14091755 (Version 1)
Quarter: 2017Q4

REPORT INFORMATION
  Report Type: Spontaneous
  Country: US (occurrence: US)
  Receive Date: 20171016
  Receipt Date: 20171016
  Transmission Date: 20180321
  Serious: No
  Sender: FDA-Public Use
  Company Number: US-PFIZER INC-2017440307

PATIENT
  Age: 5 Year
  Sex: Male
  Weight: 29 kg

DRUGS (3)
  1. QUILLIVANT XR [Concomitant]
     Active Substance: METHYLPHENIDATE HYDROCHLORIDE
     Indication: ATTENTION DEFICIT/HYPERACTIVITY DISORDER
     Dosage: 125 MG, 1X/DAY
     Route: 048
     Dates: start: 201601
  2. SERTRALINE HCL [Suspect]
     Active Substance: SERTRALINE HYDROCHLORIDE
     Indication: ANXIETY
     Dosage: 2.5 ML, 1X/DAY
     Route: 048
     Dates: start: 201705
  3. SERTRALINE HCL [Suspect]
     Active Substance: SERTRALINE HYDROCHLORIDE
     Dosage: 100 MG, (ALSO REPORTED AS 5 ML) 1X/DAY
     Route: 048

REACTIONS (3)
  - Product taste abnormal [Unknown]
  - Product preparation error [Unknown]
  - Oral discomfort [Unknown]

NARRATIVE: CASE EVENT DATE: 2017
